FAERS Safety Report 13177237 (Version 2)
Quarter: 2017Q3

REPORT INFORMATION
  Report Type: Report from Study
  Country: US (occurrence: US)
  Receive Date: 20170201
  Receipt Date: 20170731
  Transmission Date: 20171127
  Serious: No
  Sender: FDA-Public Use
  Company Number: US-EXELIXIS-CABO-16007469

PATIENT
  Sex: Female

DRUGS (14)
  1. OXYGEN. [Concomitant]
     Active Substance: OXYGEN
  2. CABOMETYX [Suspect]
     Active Substance: CABOZANTINIB S-MALATE
     Indication: RENAL CANCER
     Dosage: 60 MG, QD
     Route: 048
     Dates: start: 20160915
  3. LYRICA [Concomitant]
     Active Substance: PREGABALIN
  4. ACETAMINOPHEN. [Concomitant]
     Active Substance: ACETAMINOPHEN
  5. NAPROXEN. [Concomitant]
     Active Substance: NAPROXEN
  6. HYDROMORPHONE [Concomitant]
     Active Substance: HYDROMORPHONE
  7. CABOMETYX [Suspect]
     Active Substance: CABOZANTINIB S-MALATE
     Dosage: 60 MG, QD
     Route: 048
     Dates: start: 201701
  8. PROCHLORPERAZINE. [Concomitant]
     Active Substance: PROCHLORPERAZINE
  9. LEVOTHYROXINE. [Concomitant]
     Active Substance: LEVOTHYROXINE
  10. ZOLPIDEM [Concomitant]
     Active Substance: ZOLPIDEM\ZOLPIDEM TARTRATE
  11. BACTRIM DS [Concomitant]
     Active Substance: SULFAMETHOXAZOLE\TRIMETHOPRIM
  12. GABAPENTIN. [Concomitant]
     Active Substance: GABAPENTIN
  13. CLONIDINE. [Concomitant]
     Active Substance: CLONIDINE
  14. DEXAMETHASONE. [Concomitant]
     Active Substance: DEXAMETHASONE

REACTIONS (13)
  - Oral herpes [Unknown]
  - Alopecia [Unknown]
  - Glossodynia [Unknown]
  - Oral pain [Recovering/Resolving]
  - Chest X-ray abnormal [Unknown]
  - Noninfective gingivitis [Unknown]
  - Swollen tongue [Unknown]
  - Fatigue [Unknown]
  - Palmar-plantar erythrodysaesthesia syndrome [Unknown]
  - Thermal burn [Recovering/Resolving]
  - Impaired healing [Not Recovered/Not Resolved]
  - Skin disorder [Unknown]
  - Bronchitis [Unknown]
